FAERS Safety Report 8786163 (Version 1)
Quarter: 2012Q4

REPORT INFORMATION
  Report Type: 
  Country: US (occurrence: US)
  Receive Date: 20120914
  Receipt Date: 20120914
  Transmission Date: 20130627
  Serious: Yes (Death, Disabling)
  Sender: FDA-Public Use
  Company Number: US-TEVA-358964USA

PATIENT
  Sex: Female

DRUGS (1)
  1. PROPOXYPHENE NAPSYLATE AND ACETAMINOPHEN [Suspect]

REACTIONS (4)
  - Cardiac disorder [Unknown]
  - Nervous system disorder [Unknown]
  - Movement disorder [Unknown]
  - Death [Fatal]
